FAERS Safety Report 8722359 (Version 3)
Quarter: 2012Q4

REPORT INFORMATION
  Report Type: 
  Country: JP (occurrence: JP)
  Receive Date: 20120814
  Receipt Date: 20121128
  Transmission Date: 20130627
  Serious: Yes (Hospitalization, Other)
  Sender: FDA-Public Use
  Company Number: JP-009507513-1208JPN003566

PATIENT
  Age: 69 Year
  Sex: Male
  Weight: 59 kg

DRUGS (8)
  1. PEGINTRON [Suspect]
     Indication: CHRONIC HEPATITIS C
     Dosage: 1.5 Microgram per kilogram, weekly
     Route: 058
     Dates: start: 20120313, end: 20120705
  2. REBETOL [Suspect]
     Indication: CHRONIC HEPATITIS C
     Dosage: 400 mg, qd
     Route: 048
     Dates: start: 20120313, end: 20120411
  3. REBETOL [Suspect]
     Dosage: 400 mg, qd
     Route: 048
     Dates: start: 20120629, end: 20120706
  4. TELAVIC [Suspect]
     Indication: CHRONIC HEPATITIS C
     Dosage: 2250 mg, qd
     Route: 048
     Dates: start: 20120313, end: 20120316
  5. TELAVIC [Suspect]
     Dosage: 1500 mg, qd
     Route: 048
     Dates: start: 20120317, end: 20120629
  6. TELAVIC [Suspect]
     Dosage: UNK
  7. LOXONIN [Concomitant]
     Indication: PROPHYLAXIS
     Dosage: 60 mg PER DAY , AS NEEDED
     Route: 048
     Dates: start: 20120314
  8. SELBEX [Concomitant]
     Indication: PROPHYLAXIS
     Dosage: 50 mg PER DAY , AS NEEDED
     Route: 048
     Dates: start: 20120314

REACTIONS (2)
  - Pleural effusion [Recovering/Resolving]
  - Haemoglobin decreased [Recovering/Resolving]
